FAERS Safety Report 11208165 (Version 1)
Quarter: 2015Q2

REPORT INFORMATION
  Report Type: Spontaneous
  Country: US (occurrence: None)
  Receive Date: 20150619
  Receipt Date: 20150619
  Transmission Date: 20150821
  Serious: Yes (Hospitalization)
  Sender: FDA-Public Use
  Company Number: None

PATIENT
  Age: 69 Year
  Sex: Male
  Weight: 70.3 kg

DRUGS (14)
  1. IMODIUM [Concomitant]
     Active Substance: LOPERAMIDE HYDROCHLORIDE
  2. ALTACE [Concomitant]
     Active Substance: RAMIPRIL
  3. HYDROMORPHONE [Suspect]
     Active Substance: HYDROMORPHONE
     Indication: PAIN
     Dosage: 3MG  PO?RECENT
     Route: 048
  4. HUMALOG [Concomitant]
     Active Substance: INSULIN LISPRO
  5. PROTONIX [Concomitant]
     Active Substance: PANTOPRAZOLE SODIUM
  6. HYDROMORPHONE [Suspect]
     Active Substance: HYDROMORPHONE
     Indication: PAIN
     Dosage: 12MG  IV?RECENT
     Route: 042
  7. LANTUS [Concomitant]
     Active Substance: INSULIN GLARGINE
  8. THERAGRAN [Concomitant]
     Active Substance: VITAMINS
  9. PAZOPANIB [Concomitant]
     Active Substance: PAZOPANIB
  10. FLOMAX [Concomitant]
     Active Substance: TAMSULOSIN HYDROCHLORIDE
  11. MAXZIDE [Concomitant]
     Active Substance: HYDROCHLOROTHIAZIDE\TRIAMTERENE
  12. VITAMIN D [Concomitant]
     Active Substance: CHOLECALCIFEROL
  13. SANDOSTATIN [Concomitant]
     Active Substance: OCTREOTIDE ACETATE
  14. TESTOTERONE [Concomitant]

REACTIONS (5)
  - Accidental overdose [None]
  - Lethargy [None]
  - Somnolence [None]
  - Confusional state [None]
  - Mental status changes [None]

NARRATIVE: CASE EVENT DATE: 20141027
